FAERS Safety Report 6455418-2 (Version None)
Quarter: 2009Q4

REPORT INFORMATION
  Report Type: 
  Country: None (occurrence: None)
  Receive Date: 20091125
  Receipt Date: 20091009
  Transmission Date: 20100525
  Serious: No
  Sender: FDA-Public Use
  Company Number: US-ABBOTT-09P-163-0602402-00

PATIENT
  Sex: Male
  Weight: 101.7 kg

DRUGS (9)
  1. SIMCOR [Suspect]
     Indication: BLOOD TRIGLYCERIDES INCREASED
     Dosage: 1000/20 MG TABLET AT BEDTIME
     Route: 048
     Dates: start: 20090701, end: 20090801
  2. SIMCOR [Suspect]
     Indication: BLOOD CHOLESTEROL INCREASED
     Dosage: 1000/20MG TAB-1 TAB IN AM, 1 TAB AT BEDTIME  1 TABLET IN AM AND 1 TAB AT BEDTIME
     Route: 048
     Dates: start: 20090801
  3. DILTIAZEM [Concomitant]
     Indication: HYPERTENSION
  4. RYTHMOL [Concomitant]
     Indication: DRUG USE FOR UNKNOWN INDICATION
  5. CLONIDINE [Concomitant]
     Indication: DRUG USE FOR UNKNOWN INDICATION
  6. TRICOR [Concomitant]
     Indication: BLOOD CHOLESTEROL INCREASED
  7. WARFARIN SODIUM [Concomitant]
     Indication: DRUG USE FOR UNKNOWN INDICATION
  8. METOPROLOL TARTRATE [Concomitant]
     Indication: DRUG USE FOR UNKNOWN INDICATION
  9. HYDROCHLOROTHIAZIDE [Concomitant]
     Indication: HYPERTENSION
     Dosage: PILL

REACTIONS (1)
  - FLUSHING [None]
